FAERS Safety Report 16258832 (Version 1)
Quarter: 2019Q2

REPORT INFORMATION
  Report Type: Spontaneous
  Country: GB (occurrence: GB)
  Receive Date: 20190501
  Receipt Date: 20190501
  Transmission Date: 20190711
  Serious: Yes (Other)
  Sender: FDA-Public Use
  Company Number: GB-AUROBINDO-AUR-APL-2019-022554

PATIENT

DRUGS (8)
  1. AMLODIPINE 10 MG [Suspect]
     Active Substance: AMLODIPINE BESYLATE
     Indication: HYPERTENSION
     Dosage: 10 MILLIGRAM, DAILY
     Route: 048
     Dates: end: 20180501
  2. GAVISCON [Suspect]
     Active Substance: ALUMINUM HYDROXIDE\MAGNESIUM CARBONATE
     Indication: PRODUCT USED FOR UNKNOWN INDICATION
     Dosage: UNK, AS NECESSARY
     Route: 065
     Dates: end: 20180501
  3. VENTOLIN [Suspect]
     Active Substance: ALBUTEROL SULFATE
     Indication: ASTHMA
     Dosage: UNK
     Route: 065
     Dates: end: 20180501
  4. METFORMIN [Suspect]
     Active Substance: METFORMIN HYDROCHLORIDE
     Indication: PRODUCT USED FOR UNKNOWN INDICATION
     Dosage: 500 MILLIGRAM, EVERY OTHER DAY(500 MG, BID)
     Route: 048
     Dates: end: 20180501
  5. SERETIDE [Suspect]
     Active Substance: FLUTICASONE PROPIONATE\SALMETEROL XINAFOATE
     Indication: PRODUCT USED FOR UNKNOWN INDICATION
     Dosage: UNK
     Route: 065
     Dates: end: 20180501
  6. BUSCOPAN [Suspect]
     Active Substance: BUTYLSCOPOLAMINE BROMIDE
     Indication: PRODUCT USED FOR UNKNOWN INDICATION
     Dosage: UNK UNK, FOUR TIMES/DAY (10MG, 1-2 DF, EVERY 6 HOURS, PRN )
     Route: 048
     Dates: end: 20180501
  7. COCODAMOL [Suspect]
     Active Substance: ACETAMINOPHEN\CODEINE PHOSPHATE
     Indication: RHEUMATOID ARTHRITIS
  8. COCODAMOL [Suspect]
     Active Substance: ACETAMINOPHEN\CODEINE PHOSPHATE
     Indication: SCIATICA
     Dosage: 8 DOSAGE FORM, DAILY (2 TABLETS, 4 TIMES DAILY),
     Route: 048
     Dates: end: 20180501

REACTIONS (21)
  - Swelling [Recovering/Resolving]
  - Swelling face [Recovering/Resolving]
  - Dyspnoea [Recovering/Resolving]
  - Hypertension [Recovering/Resolving]
  - Asthma [Recovering/Resolving]
  - Confusional state [Recovering/Resolving]
  - Blister [Recovering/Resolving]
  - Headache [Recovering/Resolving]
  - Hallucination [Recovering/Resolving]
  - Back pain [Recovering/Resolving]
  - Renal impairment [Recovering/Resolving]
  - Tremor [Recovering/Resolving]
  - Constipation [Recovering/Resolving]
  - Pruritus [Recovering/Resolving]
  - Fatigue [Recovering/Resolving]
  - Liver injury [Recovering/Resolving]
  - Rash [Recovering/Resolving]
  - Lip swelling [Recovering/Resolving]
  - Dysarthria [Recovering/Resolving]
  - Vision blurred [Recovering/Resolving]
  - Hypersensitivity [Recovering/Resolving]
